FAERS Safety Report 20237067 (Version 1)
Quarter: 2021Q4

REPORT INFORMATION
  Report Type: Spontaneous
  Country: US (occurrence: US)
  Receive Date: 20211228
  Receipt Date: 20211228
  Transmission Date: 20220303
  Serious: No
  Sender: FDA-Public Use
  Company Number: US-ALKERMES INC.-ALK-2021-006606

PATIENT
  Age: 53 Year
  Sex: Female

DRUGS (1)
  1. VIVITROL [Suspect]
     Active Substance: NALTREXONE
     Indication: Drug dependence
     Dosage: 380 MILLIGRAM, QMO
     Route: 030
     Dates: start: 20211123, end: 20211123

REACTIONS (6)
  - Formication [Recovered/Resolved]
  - Faeces discoloured [Recovered/Resolved]
  - Feeling abnormal [Recovered/Resolved]
  - Diarrhoea [Recovered/Resolved]
  - Agitation [Recovered/Resolved]
  - Alcoholism [Recovered/Resolved]

NARRATIVE: CASE EVENT DATE: 20211101
